FAERS Safety Report 7655842-6 (Version None)
Quarter: 2011Q3

REPORT INFORMATION
  Report Type: 
  Country: None (occurrence: None)
  Receive Date: 20110804
  Receipt Date: 20110720
  Transmission Date: 20111222
  Serious: Yes (Other)
  Sender: FDA-Public Use
  Company Number: TT-TYCO HEALTHCARE/MALLINCKRODT-T201101438

PATIENT
  Age: 51 Year
  Sex: Female

DRUGS (2)
  1. SODIUM IODIDE I-131 SOLUTION [Suspect]
     Dosage: UNKNOWN DOSE # 2
  2. SODIUM IODIDE I-131 SOLUTION [Suspect]
     Dosage: UNKNOWN DOSE # 1

REACTIONS (1)
  - THYROID DERMATOPATHY [None]
